FAERS Safety Report 10018626 (Version 1)
Quarter: 2014Q1

REPORT INFORMATION
  Report Type: Spontaneous
  Country: GB (occurrence: GB)
  Receive Date: 20140318
  Receipt Date: 20140318
  Transmission Date: 20141002
  Serious: Yes (Congenital Anomaly, Other)
  Sender: FDA-Public Use
  Company Number: GB-ACTAVIS-2014-04751

PATIENT
  Age: 0 Day
  Sex: Male

DRUGS (6)
  1. ARIPIPRAZOLE (UNKNOWN) [Suspect]
     Indication: PRODUCT USED FOR UNKNOWN INDICATION
     Dosage: 10 MG, UNKNOWN
     Route: 065
  2. DULOXETINE HYDROCHLORIDE (AELLC) [Suspect]
     Indication: PRODUCT USED FOR UNKNOWN INDICATION
     Dosage: 60 MG DAILY
     Route: 065
  3. QUETIAPINE (UNKNOWN) [Suspect]
     Indication: PRODUCT USED FOR UNKNOWN INDICATION
     Dosage: 200 MG, QPM
     Route: 065
  4. ZOPICLONE (UNKNOWN) [Suspect]
     Indication: PRODUCT USED FOR UNKNOWN INDICATION
     Dosage: 7.5 MG, QPM
     Route: 065
  5. ZYPREXA [Suspect]
     Indication: SCHIZOAFFECTIVE DISORDER
     Dosage: 10 MG, QPM
     Route: 064
  6. ZYPREXA [Suspect]
     Dosage: 15 MG, QAM
     Route: 064

REACTIONS (5)
  - Cleft palate [Unknown]
  - High arched palate [Unknown]
  - Feeding disorder neonatal [Recovered/Resolved]
  - Exposure during breast feeding [Unknown]
  - Foetal exposure during pregnancy [Unknown]
